FAERS Safety Report 6473521-8 (Version None)
Quarter: 2009Q4

REPORT INFORMATION
  Report Type: 
  Country: None (occurrence: None)
  Receive Date: 20091204
  Receipt Date: 20081111
  Transmission Date: 20100525
  Serious: Yes (Congenital Anomaly)
  Sender: FDA-Public Use
  Company Number: IL-ELI_LILLY_AND_COMPANY-IL200811005665

PATIENT

DRUGS (1)
  1. PROZAC [Suspect]
     Dosage: 20 MG, DAILY (1/D) (MEDIAN DAILY DOSE)
     Route: 064

REACTIONS (3)
  - DRUG EXPOSURE DURING PREGNANCY [None]
  - TRANSPOSITION OF THE GREAT VESSELS [None]
  - VENTRICULAR SEPTAL DEFECT [None]
